FAERS Safety Report 8964218 (Version 2)
Quarter: 2013Q1

REPORT INFORMATION
  Report Type: Spontaneous
  Country: US (occurrence: US)
  Receive Date: 20121214
  Receipt Date: 20130123
  Transmission Date: 20140127
  Serious: Yes (Hospitalization)
  Sender: FDA-Public Use
  Company Number: US-BAYER-2012-130376

PATIENT
  Age: 46 Year
  Sex: Female

DRUGS (6)
  1. YASMIN [Suspect]
     Indication: CONTRACEPTION
  2. FUROSEMIDE [Concomitant]
     Dosage: 20 MG, UNK
  3. PERCOCET [Concomitant]
     Indication: PAIN
  4. PRILOSEC [Concomitant]
  5. LASIX [FUROSEMIDE] [Concomitant]
  6. HALDOL [Concomitant]
     Dosage: 0.5 MG, PRN

REACTIONS (1)
  - Deep vein thrombosis [Recovered/Resolved]
